FAERS Safety Report 7968337-7 (Version None)
Quarter: 2011Q4

REPORT INFORMATION
  Report Type: 
  Country: None (occurrence: None)
  Receive Date: 20111209
  Receipt Date: 20111201
  Transmission Date: 20120403
  Serious: Yes (Other)
  Sender: FDA-Public Use
  Company Number: CA-JNJFOC-20111011422

PATIENT
  Age: 36 Year
  Sex: Male

DRUGS (3)
  1. STELARA [Suspect]
     Route: 058
     Dates: start: 20090101
  2. METHOTREXATE [Suspect]
     Indication: PSORIASIS
     Dates: start: 20110501
  3. STELARA [Suspect]
     Indication: PSORIASIS
     Route: 058

REACTIONS (1)
  - AMNESIA [None]
